FAERS Safety Report 18686913 (Version 2)
Quarter: 2021Q1

REPORT INFORMATION
  Report Type: Spontaneous
  Country: CA (occurrence: CA)
  Receive Date: 20201230
  Receipt Date: 20210106
  Transmission Date: 20210419
  Serious: Yes (Other)
  Sender: FDA-Public Use
  Company Number: CA-BEH-2020126696

PATIENT
  Age: 45 Year
  Sex: Female

DRUGS (2)
  1. ALBUMIN HUMAN (INN) [Suspect]
     Active Substance: ALBUMIN HUMAN
     Indication: FLUID REPLACEMENT
     Dosage: 6 INFUSIONS
     Route: 042
  2. HUMAN IMMUNOGLOBULIN (NC) (IMMUNOGLOBULIN HUMAN NORMAL) [Suspect]
     Active Substance: HUMAN IMMUNOGLOBULIN G
     Indication: FLUID REPLACEMENT
     Dosage: 700 MILLILITER
     Route: 042

REACTIONS (4)
  - No adverse event [Unknown]
  - Gangrene [Unknown]
  - Peripheral ischaemia [Unknown]
  - Off label use [Unknown]
